FAERS Safety Report 22691416 (Version 3)
Quarter: 2024Q3

REPORT INFORMATION
  Report Type: Report from Study
  Country: PL (occurrence: PL)
  Receive Date: 20230711
  Receipt Date: 20240821
  Transmission Date: 20241016
  Serious: Yes (Other)
  Sender: AUROBINDO
  Company Number: PL-009507513-2203POL008619

PATIENT
  Age: 1 Year
  Weight: 8.8 kg

DRUGS (6)
  1. ACYCLOVIR [Interacting]
     Active Substance: ACYCLOVIR
     Indication: Acute myeloid leukaemia
     Dosage: UNK
     Route: 065
  2. CYCLOSPORINE [Interacting]
     Active Substance: CYCLOSPORINE
     Indication: Acute myeloid leukaemia
     Dosage: UNK
     Route: 065
  3. POSACONAZOLE [Interacting]
     Active Substance: POSACONAZOLE
     Indication: Antifungal prophylaxis
     Dosage: UNK
     Route: 048
  4. POSACONAZOLE [Interacting]
     Active Substance: POSACONAZOLE
     Indication: Prophylaxis against transplant rejection
  5. SULFAMETHOXAZOLE\TRIMETHOPRIM [Interacting]
     Active Substance: SULFAMETHOXAZOLE\TRIMETHOPRIM
     Indication: Acute myeloid leukaemia
     Dosage: UNK
     Route: 065
  6. COLISTIN [Interacting]
     Active Substance: COLISTIN
     Indication: Acute myeloid leukaemia
     Dosage: UNK
     Route: 065

REACTIONS (5)
  - Drug level decreased [Unknown]
  - Drug interaction [Unknown]
  - Drug level below therapeutic [Unknown]
  - Product administered to patient of inappropriate age [Unknown]
  - Product use in unapproved indication [Unknown]
